FAERS Safety Report 9269385 (Version 4)
Quarter: 2013Q3

REPORT INFORMATION
  Report Type: Report from Study
  Country: FR (occurrence: FR)
  Receive Date: 20130503
  Receipt Date: 20130920
  Transmission Date: 20140515
  Serious: Yes (Hospitalization)
  Sender: FDA-Public Use
  Company Number: FR-MPIJNJ-2013-02471

PATIENT
  Sex: 0

DRUGS (10)
  1. VELCADE [Suspect]
     Indication: PLASMA CELL MYELOMA
     Dosage: 2.4 MG, UNK
     Route: 042
  2. DEXAMETHASONE [Suspect]
     Indication: PLASMA CELL MYELOMA
     Dosage: 20 MG, UNK
     Route: 048
     Dates: start: 20130117
  3. BACTRIM [Concomitant]
     Indication: PROPHYLAXIS
     Dosage: UNK
     Route: 048
     Dates: start: 20130130
  4. SERESTA [Concomitant]
     Dosage: 30 MG, UNK
     Dates: start: 20130117
  5. ZELITREX [Concomitant]
     Dosage: UNK
     Route: 048
     Dates: start: 20130130
  6. COUMADINE [Concomitant]
     Dosage: 4 MG, UNK
     Route: 048
     Dates: start: 20130204, end: 20130315
  7. NOVORAPID [Concomitant]
     Dosage: UNK
     Route: 058
     Dates: start: 20130117
  8. KARDEGIC                           /00002703/ [Concomitant]
  9. LASILIX                            /00032601/ [Concomitant]
  10. DIFFU K [Concomitant]

REACTIONS (2)
  - Pyelonephritis [Recovering/Resolving]
  - Diarrhoea [Recovering/Resolving]
